FAERS Safety Report 25374169 (Version 3)
Quarter: 2025Q3

REPORT INFORMATION
  Report Type: Spontaneous
  Country: EU (occurrence: EU)
  Receive Date: 20250529
  Receipt Date: 20250703
  Transmission Date: 20251020
  Serious: Yes (Other)
  Sender: INSUD PHARMA
  Company Number: EU-EXELTIS PHARMACEUTICAL HOLDING, S.L.-2505DE03961

PATIENT
  Sex: Female

DRUGS (6)
  1. PROGESTERONE [Suspect]
     Active Substance: PROGESTERONE
     Indication: Hormone replacement therapy
     Dosage: 400 MILLIGRAM, QD
     Dates: start: 20231123
  2. PROGESTERONE [Suspect]
     Active Substance: PROGESTERONE
     Indication: Sleep disorder
     Dosage: 200 UNK
     Dates: start: 20230803, end: 20250102
  3. PROGESTERONE [Suspect]
     Active Substance: PROGESTERONE
     Indication: Dysmenorrhoea
  4. FLUOXETINE [Concomitant]
     Active Substance: FLUOXETINE HYDROCHLORIDE
     Indication: Depression
  5. BISOPROLOL [Concomitant]
     Active Substance: BISOPROLOL
  6. AMLODIPINE [Concomitant]
     Active Substance: AMLODIPINE BESYLATE

REACTIONS (15)
  - Optic nerve injury [Unknown]
  - Visual impairment [Unknown]
  - Product use issue [Unknown]
  - Product use in unapproved indication [Unknown]
  - Intermenstrual bleeding [Unknown]
  - Arthralgia [Unknown]
  - Dry skin [Unknown]
  - Fatigue [Unknown]
  - Limb discomfort [Unknown]
  - Irritability [Unknown]
  - Mood swings [Unknown]
  - Vitamin D deficiency [Unknown]
  - Feeling abnormal [Unknown]
  - Aggression [Unknown]
  - Back pain [Unknown]
